FAERS Safety Report 9477041 (Version 2)
Quarter: 2013Q3

REPORT INFORMATION
  Report Type: Spontaneous
  Country: US (occurrence: US)
  Receive Date: 20130826
  Receipt Date: 20130919
  Transmission Date: 20140515
  Serious: Yes (Other)
  Sender: FDA-Public Use
  Company Number: US-BAYER-2013-102800

PATIENT
  Age: 41 Year
  Sex: Female

DRUGS (1)
  1. YASMIN [Suspect]
     Dosage: UNK
     Dates: start: 200307, end: 200908

REACTIONS (7)
  - Deep vein thrombosis [Recovered/Resolved]
  - Injury [Recovered/Resolved]
  - Pain [None]
  - Emotional distress [None]
  - General physical health deterioration [Recovered/Resolved]
  - Anxiety [None]
  - Pain [Recovered/Resolved]
